FAERS Safety Report 17377204 (Version 2)
Quarter: 2020Q1

REPORT INFORMATION
  Report Type: Spontaneous
  Country: US (occurrence: US)
  Receive Date: 20200206
  Receipt Date: 20200320
  Transmission Date: 20200409
  Serious: Yes (Other)
  Sender: FDA-Public Use
  Company Number: US-009507513-2001USA008751

PATIENT
  Age: 36 Year
  Sex: Female
  Weight: 93.88 kg

DRUGS (2)
  1. NEXPLANON [Suspect]
     Active Substance: ETONOGESTREL
     Indication: CONTRACEPTION
     Dosage: 1 ROD, EVERY 3 YEARS, LEFT ARM
     Route: 059
     Dates: start: 20191223, end: 20191223
  2. VYVANSE [Concomitant]
     Active Substance: LISDEXAMFETAMINE DIMESYLATE

REACTIONS (4)
  - Device dislocation [Recovered/Resolved]
  - Device deployment issue [Recovered/Resolved]
  - Device expulsion [Recovered/Resolved]
  - Implant site erythema [Unknown]

NARRATIVE: CASE EVENT DATE: 20191223
